FAERS Safety Report 9457187 (Version 2)
Quarter: 2013Q4

REPORT INFORMATION
  Report Type: Spontaneous
  Country: AT (occurrence: AT)
  Receive Date: 20130814
  Receipt Date: 20131128
  Transmission Date: 20140711
  Serious: Yes (Other)
  Sender: FDA-Public Use
  Company Number: AT-AMGEN-AUTSP2013056519

PATIENT
  Age: 50 Year
  Sex: Female
  Weight: 75 kg

DRUGS (2)
  1. XGEVA [Suspect]
     Indication: BREAST CANCER
     Dosage: 120 MG, Q4WK
     Route: 065
     Dates: start: 20130401
  2. XGEVA [Suspect]
     Indication: METASTASES TO BONE

REACTIONS (1)
  - Exostosis of jaw [Recovering/Resolving]
